FAERS Safety Report 18127669 (Version 1)
Quarter: 2020Q3

REPORT INFORMATION
  Report Type: Spontaneous
  Country: US (occurrence: US)
  Receive Date: 20200810
  Receipt Date: 20200810
  Transmission Date: 20201103
  Serious: Yes (Other)
  Sender: FDA-Public Use
  Company Number: US-ROCHE-2655914

PATIENT
  Sex: Female

DRUGS (3)
  1. ESBRIET [Suspect]
     Active Substance: PIRFENIDONE
     Indication: IDIOPATHIC PULMONARY FIBROSIS
     Dosage: ONGOING:UNKNOWN, TAKE 1 TAB BY MOUTH 3 TIMES A DAY FOR 7 DAYS, 2 TAB 3 TIMES A DAY FOR 7 DAY, 3 TAB
     Route: 048
     Dates: start: 202007
  2. ESBRIET [Suspect]
     Active Substance: PIRFENIDONE
     Dosage: 2 TAB 3 TIMES A DAY FOR 7 DAY
     Route: 048
  3. ESBRIET [Suspect]
     Active Substance: PIRFENIDONE
     Dosage: 2 TAB 3 TIMES A DAY FOR 7 DAY
     Route: 048

REACTIONS (3)
  - Illness [Unknown]
  - Diarrhoea [Unknown]
  - Loss of consciousness [Unknown]
